FAERS Safety Report 16097896 (Version 1)
Quarter: 2019Q1

REPORT INFORMATION
  Report Type: Report from Study
  Country: JP (occurrence: JP)
  Receive Date: 20190320
  Receipt Date: 20190320
  Transmission Date: 20190418
  Serious: Yes (Hospitalization, Other)
  Sender: FDA-Public Use
  Company Number: JP-BRISTOL-MYERS SQUIBB COMPANY-BMS-2019-025689

PATIENT
  Age: 69 Year
  Sex: Male
  Weight: 50.1 kg

DRUGS (20)
  1. ALENDRONATE [Concomitant]
     Active Substance: ALENDRONATE SODIUM
     Indication: OSTEOPOROSIS
     Dosage: 35 MILLILITER, QWK
     Route: 048
     Dates: start: 20180605
  2. GENTAMICIN SULFATE. [Concomitant]
     Active Substance: GENTAMICIN SULFATE
     Indication: BIOPSY
     Dosage: UNK
     Route: 061
     Dates: start: 20190307
  3. MIYA-BM [Concomitant]
     Active Substance: CLOSTRIDIUM BUTYRICUM SPORES STRAIN M-55
     Indication: DIARRHOEA
     Dosage: 40 MILLIGRAM, Q8H
     Route: 048
     Dates: start: 20190309
  4. CARBOPLATIN. [Suspect]
     Active Substance: CARBOPLATIN
     Indication: LUNG ADENOCARCINOMA
     Dosage: 543.9 MILLILITER
     Route: 042
     Dates: start: 20190226
  5. BEVACIZUMAB. [Suspect]
     Active Substance: BEVACIZUMAB
     Indication: LUNG ADENOCARCINOMA
     Dosage: 789 MILLILITER
     Route: 042
     Dates: start: 20190226
  6. RESTAMIN KOWA [Concomitant]
     Indication: PROPHYLAXIS
     Dosage: 50 MILLIGRAM
     Route: 048
     Dates: start: 20190226
  7. IFENPRODIL TARTRATE [Concomitant]
     Active Substance: IFENPRODIL TARTRATE
     Indication: LUMBAR SPINAL STENOSIS
     Dosage: 20 MILLIGRAM, Q8H
     Route: 048
     Dates: start: 20180605
  8. AZUNOL                             /00317302/ [Concomitant]
     Indication: SKIN LACERATION
     Dosage: UNK UNK, PRN
     Route: 061
     Dates: start: 20190311
  9. EDIROL [Concomitant]
     Active Substance: ELDECALCITOL
     Indication: OSTEOPOROSIS
     Dosage: 0.75 MICROGRAM
     Route: 048
     Dates: start: 20180605
  10. EURAX [Concomitant]
     Active Substance: CROTAMITON
     Indication: RASH
     Dosage: UNK, Q12H
     Route: 061
     Dates: start: 20190303
  11. NIVOLUMAB [Suspect]
     Active Substance: NIVOLUMAB
     Indication: LUNG ADENOCARCINOMA
     Dosage: 360 MILLIGRAM
     Route: 041
     Dates: start: 20190226
  12. EMEND [Concomitant]
     Active Substance: APREPITANT
     Indication: PROPHYLAXIS
     Dosage: 125 MILLIGRAM
     Route: 048
     Dates: start: 20190226
  13. GASTER                             /00082102/ [Concomitant]
     Indication: PROPHYLAXIS
     Dosage: 20 MILLIGRAM
     Route: 042
     Dates: start: 20190226
  14. ANFLAVATE [Concomitant]
     Active Substance: BETAMETHASONE BUTYRATE PROPIONATE
     Indication: RASH
     Dosage: UNK, Q12H
     Route: 061
     Dates: start: 20190307
  15. ACETAMINOPHEN. [Concomitant]
     Active Substance: ACETAMINOPHEN
     Indication: ARTHRALGIA
     Dosage: 400 MILLIGRAM, PRN
     Route: 048
     Dates: start: 20190228
  16. EPINASTINE HYDROCHLORIDE. [Concomitant]
     Active Substance: EPINASTINE HYDROCHLORIDE
     Indication: RASH
     Dosage: 20 MILLIGRAM
     Route: 048
     Dates: start: 20190304
  17. PACLITAXEL. [Suspect]
     Active Substance: PACLITAXEL
     Indication: LUNG ADENOCARCINOMA
     Dosage: 308 MILLILITER
     Route: 042
     Dates: start: 20190226
  18. ALOXI [Concomitant]
     Active Substance: PALONOSETRON HYDROCHLORIDE
     Indication: PROPHYLAXIS
     Dosage: 0.75 MILLIGRAM
     Route: 042
     Dates: start: 20190226
  19. DEXART [Concomitant]
     Active Substance: DEXAMETHASONE SODIUM PHOSPHATE
     Indication: PROPHYLAXIS
     Dosage: 19.8 MILLIGRAM
     Route: 042
     Dates: start: 20190226
  20. TOCOPHEROL ACETATE                 /00110501/ [Concomitant]
     Indication: LUMBAR SPINAL STENOSIS
     Dosage: 100 MILLIGRAM, Q8H
     Route: 048
     Dates: start: 20180605

REACTIONS (1)
  - Neutropenia [Recovered/Resolved]

NARRATIVE: CASE EVENT DATE: 20190305
